FAERS Safety Report 6747238-6 (Version None)
Quarter: 2010Q2

REPORT INFORMATION
  Report Type: 
  Country: None (occurrence: None)
  Receive Date: 20100528
  Receipt Date: 20100519
  Transmission Date: 20101027
  Serious: Yes (Hospitalization)
  Sender: FDA-Public Use
  Company Number: A0774084A

PATIENT
  Age: 54 Year
  Sex: Female
  Weight: 77.3 kg

DRUGS (1)
  1. AVANDIA [Suspect]
     Dosage: 4MG PER DAY
     Route: 048
     Dates: start: 19991019, end: 20011220

REACTIONS (4)
  - CEREBROVASCULAR ACCIDENT [None]
  - EYELID PTOSIS [None]
  - MICROANGIOPATHY [None]
  - PYELONEPHRITIS [None]
